FAERS Safety Report 16438521 (Version 10)
Quarter: 2020Q2

REPORT INFORMATION
  Report Type: Report from Study
  Country: US (occurrence: US)
  Receive Date: 20190617
  Receipt Date: 20200415
  Transmission Date: 20200713
  Serious: Yes (Other)
  Sender: FDA-Public Use
  Company Number: US-BRISTOL-MYERS SQUIBB COMPANY-BMS-2019-056834

PATIENT
  Age: 63 Year
  Sex: Male

DRUGS (1)
  1. NIVOLUMAB [Suspect]
     Active Substance: NIVOLUMAB
     Indication: HEAD AND NECK CANCER
     Dosage: UNK, Q2WK
     Route: 042
     Dates: start: 20180914

REACTIONS (20)
  - Pulmonary haemorrhage [Unknown]
  - Hypersensitivity [Unknown]
  - Vision blurred [Unknown]
  - Fatigue [Recovered/Resolved]
  - Pruritus [Not Recovered/Not Resolved]
  - Weight abnormal [Unknown]
  - Haemoptysis [Unknown]
  - Arthropod sting [Not Recovered/Not Resolved]
  - Cough [Unknown]
  - Piloerection [Unknown]
  - Nasopharyngitis [Not Recovered/Not Resolved]
  - Abdominal discomfort [Unknown]
  - Malignant neoplasm progression [Recovering/Resolving]
  - Hyperventilation [Unknown]
  - Headache [Unknown]
  - Arthropod bite [Not Recovered/Not Resolved]
  - Rhinorrhoea [Not Recovered/Not Resolved]
  - Memory impairment [Unknown]
  - Insomnia [Unknown]
  - Arthralgia [Unknown]

NARRATIVE: CASE EVENT DATE: 201811
